FAERS Safety Report 18777867 (Version 1)
Quarter: 2021Q1

REPORT INFORMATION
  Report Type: Spontaneous
  Country: US (occurrence: US)
  Receive Date: 20210122
  Receipt Date: 20210122
  Transmission Date: 20210419
  Serious: No
  Sender: FDA-Public Use
  Company Number: 2020SGN03730

PATIENT
  Sex: Female

DRUGS (2)
  1. XELODA [Suspect]
     Active Substance: CAPECITABINE
     Indication: BREAST CANCER FEMALE
  2. TUKYSA [Suspect]
     Active Substance: TUCATINIB
     Indication: BREAST CANCER FEMALE

REACTIONS (7)
  - Nausea [Unknown]
  - Renal impairment [Unknown]
  - Disease progression [Unknown]
  - Unevaluable event [Recovering/Resolving]
  - Weight decreased [Recovering/Resolving]
  - Urinary tract infection [Unknown]
  - Diarrhoea [Recovering/Resolving]
